FAERS Safety Report 11287059 (Version 1)
Quarter: 2015Q3

REPORT INFORMATION
  Report Type: Spontaneous
  Country: US (occurrence: US)
  Receive Date: 20150721
  Receipt Date: 20150721
  Transmission Date: 20151125
  Serious: Yes (Other)
  Sender: FDA-Public Use
  Company Number: US-AMGEN-USASP2015071396

PATIENT
  Age: 74 Year
  Sex: Female

DRUGS (1)
  1. ENBREL [Suspect]
     Active Substance: ETANERCEPT
     Indication: RHEUMATOID ARTHRITIS
     Dosage: UNK
     Route: 065

REACTIONS (9)
  - Thrombosis [Unknown]
  - Procedural complication [Unknown]
  - Rheumatoid arthritis [Unknown]
  - Eye infection [Unknown]
  - Subdural haematoma [Unknown]
  - Lacrimation decreased [Unknown]
  - VIIth nerve paralysis [Unknown]
  - Neoplasm [Recovered/Resolved]
  - Cough [Unknown]

NARRATIVE: CASE EVENT DATE: 2013
